FAERS Safety Report 7610673-8 (Version None)
Quarter: 2011Q3

REPORT INFORMATION
  Report Type: 
  Country: None (occurrence: None)
  Receive Date: 20110715
  Receipt Date: 20110712
  Transmission Date: 20111222
  Serious: Yes (Other)
  Sender: FDA-Public Use
  Company Number: US-PFIZER INC-2011157385

PATIENT

DRUGS (1)
  1. LYRICA [Suspect]
     Dosage: UNK

REACTIONS (4)
  - HERPES ZOSTER [None]
  - COMPLEX REGIONAL PAIN SYNDROME [None]
  - VIITH NERVE PARALYSIS [None]
  - NEUROLOGICAL SYMPTOM [None]
